FAERS Safety Report 18107758 (Version 1)
Quarter: 2020Q3

REPORT INFORMATION
  Report Type: Report from Study
  Country: US (occurrence: US)
  Receive Date: 20200803
  Receipt Date: 20200803
  Transmission Date: 20201103
  Serious: Yes (Hospitalization)
  Sender: FDA-Public Use
  Company Number: US-ACTELION-A-NJ2020-207014

PATIENT
  Age: 59 Year
  Sex: Female

DRUGS (12)
  1. OPSUMIT [Suspect]
     Active Substance: MACITENTAN
     Indication: PULMONARY ARTERIAL HYPERTENSION
     Dosage: 10 MG, QD
     Route: 048
     Dates: start: 20200627
  2. MIDODRINE [Concomitant]
     Active Substance: MIDODRINE
  3. LEVOTHYROXINE. [Concomitant]
     Active Substance: LEVOTHYROXINE
  4. COUMADIN [Concomitant]
     Active Substance: WARFARIN SODIUM
  5. AMIODARONE [Concomitant]
     Active Substance: AMIODARONE
  6. SODIUM CHLORIDE. [Concomitant]
     Active Substance: SODIUM CHLORIDE
  7. GABAPENTIN. [Concomitant]
     Active Substance: GABAPENTIN
  8. FUROSEMIDE. [Concomitant]
     Active Substance: FUROSEMIDE
  9. PANTOPRAZOLE [Concomitant]
     Active Substance: PANTOPRAZOLE
  10. HYDROXYCHLOROQUINE [Concomitant]
     Active Substance: HYDROXYCHLOROQUINE
  11. MULTIVITAMIN AND MINERAL [Concomitant]
     Active Substance: MINERALS\VITAMINS
  12. VITAMIN B COMPLEX [Concomitant]
     Active Substance: CYANOCOBALAMIN\DEXPANTHENOL\NIACINAMIDE\PYRIDOXINE HYDROCHLORIDE\RIBOFLAVIN 5^-PHOSPHATE SODIUM\THIAMINE HYDROCHLORIDE\VITAMIN B COMPLEX

REACTIONS (14)
  - Feeling abnormal [Not Recovered/Not Resolved]
  - Cardiac failure congestive [Unknown]
  - Blood loss anaemia [Unknown]
  - Acute kidney injury [Unknown]
  - Fall [Unknown]
  - Acute respiratory failure [Unknown]
  - Arthralgia [Unknown]
  - Balance disorder [Not Recovered/Not Resolved]
  - Dyspnoea [Unknown]
  - International normalised ratio increased [Not Recovered/Not Resolved]
  - Disorientation [Not Recovered/Not Resolved]
  - Pneumonia [Unknown]
  - Hyponatraemia [Recovering/Resolving]
  - Hyperkalaemia [Recovering/Resolving]

NARRATIVE: CASE EVENT DATE: 20200628
